FAERS Safety Report 6411378-1 (Version None)
Quarter: 2009Q4

REPORT INFORMATION
  Report Type: 
  Country: None (occurrence: None)
  Receive Date: 20091020
  Receipt Date: 20091007
  Transmission Date: 20100525
  Serious: Yes (Death, Hospitalization)
  Sender: FDA-Public Use
  Company Number: 2009AC000033

PATIENT
  Age: 54 Year
  Sex: Male

DRUGS (19)
  1. DIGOXIN [Suspect]
     Indication: HEART RATE IRREGULAR
     Dosage: 0.25 MG; PO
     Route: 048
  2. PREDNISOLONE [Concomitant]
  3. METHYLPREDNISOLONE 4MG TAB [Concomitant]
  4. DOPAMINE HCL [Concomitant]
  5. LEVOPHED [Concomitant]
  6. PLAVIX [Concomitant]
  7. LISINOPRIL [Concomitant]
  8. NITROGLYCERIN [Concomitant]
  9. KLOR-CON [Concomitant]
  10. FUROSEMIDE [Concomitant]
  11. SPIRONOLACTONE [Concomitant]
  12. COREG [Concomitant]
  13. COLCHICINE [Concomitant]
  14. CEPHALEXIN [Concomitant]
  15. PACERONE [Concomitant]
  16. SPIRONOLACTONE [Concomitant]
  17. LISINOPRIL [Concomitant]
  18. PLAVIX [Concomitant]
  19. CARVEDILOL [Concomitant]

REACTIONS (23)
  - ABDOMINAL DISTENSION [None]
  - ANXIETY [None]
  - ASTHENIA [None]
  - ATRIAL FIBRILLATION [None]
  - CARDIAC FAILURE CONGESTIVE [None]
  - CARDIAC VALVE DISEASE [None]
  - CEREBROVASCULAR ACCIDENT [None]
  - DEHYDRATION [None]
  - DIARRHOEA [None]
  - ECONOMIC PROBLEM [None]
  - FLATULENCE [None]
  - HYPERBILIRUBINAEMIA [None]
  - ILEUS [None]
  - ILL-DEFINED DISORDER [None]
  - INTRACARDIAC THROMBUS [None]
  - MULTIPLE INJURIES [None]
  - MUSCLE SPASMS [None]
  - NAUSEA [None]
  - PAIN [None]
  - PULMONARY OEDEMA [None]
  - RESPIRATORY FAILURE [None]
  - THERAPEUTIC AGENT TOXICITY [None]
  - VOMITING [None]
